FAERS Safety Report 7794474-6 (Version None)
Quarter: 2011Q4

REPORT INFORMATION
  Report Type: 
  Country: None (occurrence: None)
  Receive Date: 20111004
  Receipt Date: 20110923
  Transmission Date: 20120403
  Serious: Yes (Hospitalization)
  Sender: FDA-Public Use
  Company Number: SE-SANOFI-AVENTIS-2011SA062899

PATIENT

DRUGS (3)
  1. CAPECITABINE [Suspect]
     Route: 065
     Dates: start: 20110823
  2. OXALIPLATIN [Suspect]
     Route: 065
     Dates: start: 20110823
  3. BEVACIZUMAB [Suspect]
     Route: 065
     Dates: start: 20110823

REACTIONS (1)
  - ARTERIOSPASM CORONARY [None]
